FAERS Safety Report 18427954 (Version 1)
Quarter: 2020Q4

REPORT INFORMATION
  Report Type: Spontaneous
  Country: US (occurrence: US)
  Receive Date: 20201026
  Receipt Date: 20201026
  Transmission Date: 20210114
  Serious: No
  Sender: FDA-Public Use
  Company Number: US-ABBVIE-19K-163-3195779-00

PATIENT
  Sex: Female

DRUGS (1)
  1. LUPRON DEPOT [Suspect]
     Active Substance: LEUPROLIDE ACETATE
     Indication: ARTIFICIAL MENOPAUSE
     Route: 030

REACTIONS (5)
  - Endometriosis [Unknown]
  - Irritable bowel syndrome [Unknown]
  - Hyperhidrosis [Unknown]
  - Bone pain [Unknown]
  - Cystitis interstitial [Unknown]
